FAERS Safety Report 5485361-7 (Version None)
Quarter: 2007Q4

REPORT INFORMATION
  Report Type: 
  Country: None (occurrence: None)
  Receive Date: 20071015
  Receipt Date: 20071005
  Transmission Date: 20080405
  Serious: Yes (Other)
  Sender: FDA-Public Use
  Company Number: GB-BRISTOL-MYERS SQUIBB COMPANY-13937164

PATIENT
  Age: 73 Year
  Sex: Male

DRUGS (5)
  1. METFORMIN HCL [Suspect]
     Indication: DIABETES MELLITUS
     Route: 048
     Dates: start: 20070824, end: 20070831
  2. ASPIRIN [Concomitant]
     Route: 048
  3. DILTIAZEM HCL [Concomitant]
     Route: 048
  4. GLICLAZIDE [Concomitant]
     Route: 048
  5. GTN-S [Concomitant]
     Route: 062

REACTIONS (4)
  - PROTEIN URINE PRESENT [None]
  - RASH [None]
  - URINE ALBUMIN/CREATININE RATIO INCREASED [None]
  - VASCULITIC RASH [None]
